FAERS Safety Report 17355158 (Version 1)
Quarter: 2020Q1

REPORT INFORMATION
  Report Type: Spontaneous
  Country: US (occurrence: US)
  Receive Date: 20200131
  Receipt Date: 20200131
  Transmission Date: 20200409
  Serious: No
  Sender: FDA-Public Use
  Company Number: US-SHIRE-US202003465

PATIENT
  Sex: Female

DRUGS (2)
  1. AGRYLIN [Suspect]
     Active Substance: ANAGRELIDE HYDROCHLORIDE
     Indication: THROMBOCYTOSIS
     Dosage: 5 MILLIGRAM, 2X/DAY:BID
     Route: 065
  2. AGRYLIN [Suspect]
     Active Substance: ANAGRELIDE HYDROCHLORIDE
     Dosage: 1 MILLIGRAM, 1X/DAY:QD
     Route: 065

REACTIONS (4)
  - Fatigue [Unknown]
  - Heart rate increased [Unknown]
  - Platelet count increased [Unknown]
  - Dizziness [Unknown]
